FAERS Safety Report 13146157 (Version 3)
Quarter: 2017Q1

REPORT INFORMATION
  Report Type: Spontaneous
  Country: GB (occurrence: GB)
  Receive Date: 20170125
  Receipt Date: 20170210
  Transmission Date: 20170428
  Serious: Yes (Other)
  Sender: FDA-Public Use
  Company Number: GB-AMGEN-GBRSP2017010382

PATIENT
  Age: 48 Year
  Sex: Female

DRUGS (3)
  1. MYFENAX [Concomitant]
     Active Substance: MYCOPHENOLATE MOFETIL
     Dosage: 500 MG, UNK
  2. ARANESP [Suspect]
     Active Substance: DARBEPOETIN ALFA
     Indication: PRODUCT USED FOR UNKNOWN INDICATION
     Dosage: 150 MUG/0.3ML 4 SYRINGE, UNK
     Route: 065
  3. ADOPORT [Concomitant]
     Active Substance: TACROLIMUS
     Dosage: 1 MG, UNK

REACTIONS (6)
  - Malaise [Unknown]
  - Nasopharyngitis [Unknown]
  - Lower respiratory tract infection [Unknown]
  - Injection site pain [Unknown]
  - Headache [Unknown]
  - Feeling abnormal [Unknown]
